FAERS Safety Report 5723630-3 (Version None)
Quarter: 2008Q2

REPORT INFORMATION
  Report Type: 
  Country: None (occurrence: None)
  Receive Date: 20080425
  Receipt Date: 20080418
  Transmission Date: 20081010
  Serious: Yes (Hospitalization)
  Sender: FDA-Public Use
  Company Number: 2008-02529

PATIENT
  Age: 45 Year
  Sex: Female

DRUGS (1)
  1. TRELSTAR DEPOT [Suspect]
     Indication: FIBROMA
     Dosage: INTRAMUSCULAR
     Route: 030
     Dates: start: 20080201

REACTIONS (4)
  - FACIAL BONES FRACTURE [None]
  - FALL [None]
  - HYPERTENSIVE CRISIS [None]
  - LOSS OF CONSCIOUSNESS [None]
